FAERS Safety Report 9261144 (Version 1)
Quarter: 2013Q2

REPORT INFORMATION
  Report Type: Spontaneous
  Country: US (occurrence: US)
  Receive Date: 20130429
  Receipt Date: 20130429
  Transmission Date: 20140414
  Serious: No
  Sender: FDA-Public Use
  Company Number: US-AMGEN-USASP2013002090

PATIENT
  Age: 75 Year
  Sex: Female

DRUGS (1)
  1. SENSIPAR [Suspect]
     Indication: HYPERPARATHYROIDISM
     Dosage: 30 MG, UNK
     Dates: start: 201206

REACTIONS (2)
  - Blood parathyroid hormone abnormal [Unknown]
  - Blood calcium increased [Unknown]
